FAERS Safety Report 4575083-9 (Version None)
Quarter: 2005Q1

REPORT INFORMATION
  Report Type: 
  Country: None (occurrence: None)
  Receive Date: 20050208
  Receipt Date: 20050127
  Transmission Date: 20050727
  Serious: Yes (Hospitalization)
  Sender: FDA-Public Use
  Company Number: 2005JP000162

PATIENT
  Age: 64 Year
  Sex: Male
  Weight: 79 kg

DRUGS (3)
  1. SAWACILLIN [Suspect]
     Route: 048
     Dates: start: 20020731
  2. CLARITHROMYCIN [Suspect]
     Route: 048
     Dates: start: 20020731
  3. LANSOPRAZOLE [Suspect]
     Route: 048
     Dates: start: 20020731

REACTIONS (5)
  - COUGH [None]
  - HYPOXIA [None]
  - LYMPHOCYTE STIMULATION TEST POSITIVE [None]
  - PNEUMONIA [None]
  - PYREXIA [None]
